FAERS Safety Report 15258382 (Version 2)
Quarter: 2018Q4

REPORT INFORMATION
  Report Type: Spontaneous
  Country: US (occurrence: US)
  Receive Date: 20180809
  Receipt Date: 20181029
  Transmission Date: 20190204
  Serious: No
  Sender: FDA-Public Use
  Company Number: US-BIOGEN-2018BI00618774

PATIENT
  Sex: Female

DRUGS (1)
  1. TECFIDERA [Suspect]
     Active Substance: DIMETHYL FUMARATE
     Indication: MULTIPLE SCLEROSIS
     Route: 065
     Dates: start: 20180814

REACTIONS (4)
  - Memory impairment [Unknown]
  - Nerve compression [Not Recovered/Not Resolved]
  - Road traffic accident [Recovered/Resolved]
  - Flushing [Recovered/Resolved]
